FAERS Safety Report 19589921 (Version 1)
Quarter: 2021Q3

REPORT INFORMATION
  Report Type: Spontaneous
  Country: US (occurrence: US)
  Receive Date: 20210721
  Receipt Date: 20210721
  Transmission Date: 20211014
  Serious: Yes (Other)
  Sender: FDA-Public Use
  Company Number: US-009507513-2107USA006719

PATIENT
  Age: 8 Year
  Sex: Male

DRUGS (2)
  1. TEMODAR [Suspect]
     Active Substance: TEMOZOLOMIDE
     Indication: OPTIC GLIOMA
     Dosage: UNK
  2. CARBOPLATIN. [Suspect]
     Active Substance: CARBOPLATIN
     Dosage: UNK

REACTIONS (8)
  - Somnolence [Unknown]
  - Anaphylactic reaction [Unknown]
  - Product use issue [Unknown]
  - Intellectual disability [Unknown]
  - Optic glioma [Unknown]
  - Seizure [Unknown]
  - Precocious puberty [Unknown]
  - Distractibility [Unknown]

NARRATIVE: CASE EVENT DATE: 2016
